FAERS Safety Report 9994698 (Version 1)
Quarter: 2014Q1

REPORT INFORMATION
  Report Type: Spontaneous
  Country: US (occurrence: US)
  Receive Date: 20140311
  Receipt Date: 20140311
  Transmission Date: 20141002
  Serious: No
  Sender: FDA-Public Use
  Company Number: US-BAYER-2014-037106

PATIENT
  Sex: Female

DRUGS (3)
  1. BETASERON [Suspect]
     Dosage: 0.25 ML, QOD
     Route: 058
  2. ORTHO TRI-CYCLEN LO [Concomitant]
  3. VERAPAMIL [Concomitant]

REACTIONS (1)
  - Injection site reaction [Unknown]
